FAERS Safety Report 25583222 (Version 1)
Quarter: 2025Q3

REPORT INFORMATION
  Report Type: Spontaneous
  Country: EU (occurrence: EU)
  Receive Date: 20250721
  Receipt Date: 20250721
  Transmission Date: 20251021
  Serious: Yes (Hospitalization)
  Sender: ACCORD
  Company Number: None

PATIENT
  Age: 87 Year
  Sex: Female
  Weight: 64.9 kg

DRUGS (3)
  1. CARBOPLATIN [Suspect]
     Active Substance: CARBOPLATIN
     Indication: Breast cancer
     Dates: start: 20250130, end: 20250227
  2. PACLITAXEL [Suspect]
     Active Substance: PACLITAXEL
     Indication: Breast cancer
     Dates: start: 20250130, end: 20250227
  3. EDOXABAN [Concomitant]
     Active Substance: EDOXABAN
     Indication: Arrhythmia prophylaxis
     Dosage: STRENGTH: 60 MG, 60 MG EVERY 24 HOURS
     Dates: start: 20221221, end: 20250303

REACTIONS (3)
  - Agranulocytosis [Recovered/Resolved]
  - Asthenia [Recovered/Resolved]
  - Mucosal inflammation [Recovered/Resolved]

NARRATIVE: CASE EVENT DATE: 20250303
